FAERS Safety Report 5116279-7 (Version None)
Quarter: 2006Q3

REPORT INFORMATION
  Report Type: 
  Country: None (occurrence: None)
  Receive Date: 20060925
  Receipt Date: 20060914
  Transmission Date: 20061208
  Serious: Yes (Death)
  Sender: FDA-Public Use
  Company Number: B0438953A

PATIENT
  Age: 30 Year
  Sex: Female

DRUGS (5)
  1. PAXIL [Suspect]
  2. TRIMETHOPRIM [Suspect]
  3. LORAZEPAM [Suspect]
  4. VALPROIC ACID [Suspect]
  5. QUETIAPINE FUMARATE [Suspect]

REACTIONS (4)
  - COMPLETED SUICIDE [None]
  - DRUG TOXICITY [None]
  - NONSPECIFIC REACTION [None]
  - PULMONARY OEDEMA [None]
